FAERS Safety Report 9897913 (Version 2)
Quarter: 2014Q2

REPORT INFORMATION
  Report Type: Spontaneous
  Country: US (occurrence: US)
  Receive Date: 20140214
  Receipt Date: 20140402
  Transmission Date: 20141212
  Serious: No
  Sender: FDA-Public Use
  Company Number: US-PFIZER INC-2014041228

PATIENT
  Age: 49 Year
  Sex: Male

DRUGS (3)
  1. SUTENT [Suspect]
     Indication: RENAL CANCER
     Dosage: 50 MG, CYCLIC (EVERY DAY FOR 28 DAYS, 14 DAYS OFF)
     Route: 048
     Dates: start: 20131227
  2. SUTENT [Suspect]
     Dosage: 50 MG, CYCLIC (EVERY DAY FOR 28 DAYS, 14 DAYS OFF)
     Route: 048
     Dates: start: 20140101
  3. METFORMIN [Concomitant]
     Dosage: UNK

REACTIONS (2)
  - Dysgeusia [Unknown]
  - Oral discomfort [Unknown]
